FAERS Safety Report 11855574 (Version 3)
Quarter: 2016Q1

REPORT INFORMATION
  Report Type: Spontaneous
  Country: CN (occurrence: CN)
  Receive Date: 20151221
  Receipt Date: 20160128
  Transmission Date: 20160526
  Serious: Yes (Hospitalization)
  Sender: FDA-Public Use
  Company Number: CN-VIIV HEALTHCARE LIMITED-CN2015GSK178393

PATIENT
  Age: 45 Year
  Sex: Male

DRUGS (2)
  1. HEPTODIN [Suspect]
     Active Substance: LAMIVUDINE
     Indication: HEPATITIS B
     Dosage: 100 MG, QD
     Route: 048
     Dates: start: 2010
  2. HEPTODIN [Suspect]
     Active Substance: LAMIVUDINE
     Dosage: UNK

REACTIONS (7)
  - Suspected counterfeit product [Unknown]
  - Pyrexia [Recovered/Resolved]
  - Jaundice [Not Recovered/Not Resolved]
  - Perihepatic discomfort [Recovering/Resolving]
  - Alanine aminotransferase increased [Not Recovered/Not Resolved]
  - Transaminases increased [Recovered/Resolved]
  - Swelling [Recovering/Resolving]

NARRATIVE: CASE EVENT DATE: 2011
